FAERS Safety Report 9407939 (Version 1)
Quarter: 2013Q3

REPORT INFORMATION
  Report Type: Spontaneous
  Country: FR (occurrence: FR)
  Receive Date: 20130718
  Receipt Date: 20130718
  Transmission Date: 20140515
  Serious: Yes (Other)
  Sender: FDA-Public Use
  Company Number: FR-ASTRAZENECA-2013SE52439

PATIENT
  Age: 28708 Day
  Sex: Male

DRUGS (8)
  1. CASODEX [Suspect]
     Indication: PROSTATE CANCER
     Route: 048
     Dates: start: 20130514, end: 20130528
  2. ZOLADEX [Suspect]
     Indication: PROSTATE CANCER
     Route: 058
     Dates: start: 20130530
  3. FLECAINE [Concomitant]
  4. SECTRAL [Concomitant]
  5. INIPOMP [Concomitant]
  6. BIPANTHYL [Concomitant]
  7. TANAKAN [Concomitant]
  8. LUMIGAN [Concomitant]

REACTIONS (1)
  - Glaucoma [Unknown]
